FAERS Safety Report 5277258-2 (Version None)
Quarter: 2007Q1

REPORT INFORMATION
  Report Type: 
  Country: None (occurrence: None)
  Receive Date: 20070322
  Receipt Date: 20070322
  Transmission Date: 20070707
  Serious: Yes (Life-Threatening, Hospitalization)
  Sender: FDA-Public Use
  Company Number: None

PATIENT
  Age: 28 Year
  Sex: Male
  Weight: 83.2 kg

DRUGS (13)
  1. FLUDARABINE [Suspect]
     Indication: CHEMOTHERAPY
     Dosage: 70 MG QD IV
     Route: 042
     Dates: start: 20070208, end: 20070212
  2. CYTOXAN [Suspect]
     Indication: CHEMOTHERAPY
     Dosage: 2 GM IV QD
     Route: 042
     Dates: start: 20070213, end: 20070214
  3. UMBILICAL CORD BLOOD [Suspect]
  4. ATGAM [Suspect]
  5. DILAUDID [Concomitant]
  6. CELLCEPT [Concomitant]
  7. CYCLOSPORINE [Concomitant]
  8. ABELCET [Concomitant]
  9. CIPROFLOXACIN [Concomitant]
  10. MOROPENEM [Concomitant]
  11. VORICONAZOLE [Concomitant]
  12. ACYCLOVIR [Concomitant]
  13. ESOMEPRAZOLE MAGNESIUM [Concomitant]

REACTIONS (5)
  - ACUTE RESPIRATORY FAILURE [None]
  - GENERALISED OEDEMA [None]
  - HYPOXIA [None]
  - LUNG CONSOLIDATION [None]
  - PLEURAL EFFUSION [None]
